FAERS Safety Report 24054753 (Version 2)
Quarter: 2024Q4

REPORT INFORMATION
  Report Type: Report from Study
  Country: AR (occurrence: AR)
  Receive Date: 20240705
  Receipt Date: 20241001
  Transmission Date: 20250115
  Serious: Yes (Hospitalization, Other)
  Sender: AMGEN
  Company Number: AR-AMGEN-ARGSL2024131393

PATIENT
  Age: 64 Year
  Sex: Female

DRUGS (2)
  1. VECTIBIX [Suspect]
     Active Substance: PANITUMUMAB
     Indication: Colorectal cancer
     Dosage: UNK
     Route: 065
     Dates: start: 20240325, end: 2024
  2. VECTIBIX [Suspect]
     Active Substance: PANITUMUMAB
     Dosage: UNK (15 DAYS, LESS, NOT THE WHOLE DOSE AS BEFORE)
     Route: 065
     Dates: start: 2024

REACTIONS (5)
  - Ill-defined disorder [Unknown]
  - Blood sodium decreased [Unknown]
  - Muscle spasms [Unknown]
  - Blood potassium decreased [Unknown]
  - Incorrect dose administered [Unknown]

NARRATIVE: CASE EVENT DATE: 20240101
